FAERS Safety Report 7651974-7 (Version None)
Quarter: 2011Q3

REPORT INFORMATION
  Report Type: 
  Country: None (occurrence: None)
  Receive Date: 20110803
  Receipt Date: 20110722
  Transmission Date: 20111222
  Serious: No
  Sender: FDA-Public Use
  Company Number: US-BIOGENIDEC-2011BI027718

PATIENT
  Sex: Male

DRUGS (2)
  1. TYSABRI [Suspect]
     Indication: MULTIPLE SCLEROSIS
     Route: 042
     Dates: start: 20100706
  2. WELLBUTRIN [Concomitant]
     Indication: MOOD ALTERED

REACTIONS (4)
  - DRUG INEFFECTIVE [None]
  - MULTIPLE SCLEROSIS [None]
  - HYPOAESTHESIA [None]
  - PAIN IN EXTREMITY [None]
